FAERS Safety Report 25086999 (Version 1)
Quarter: 2025Q1

REPORT INFORMATION
  Report Type: Spontaneous
  Country: GB (occurrence: GB)
  Receive Date: 20250318
  Receipt Date: 20250318
  Transmission Date: 20250409
  Serious: Yes (Other)
  Sender: SANDOZ
  Company Number: None

PATIENT
  Age: 36 Year
  Sex: Female
  Weight: 73 kg

DRUGS (1)
  1. CLARITHROMYCIN [Suspect]
     Active Substance: CLARITHROMYCIN
     Indication: Ear infection bacterial
     Dosage: 500 MG, BID (500MG TWICE A DAY)
     Route: 065
     Dates: start: 20250311, end: 20250314

REACTIONS (2)
  - Panic attack [Recovered/Resolved]
  - Anxiety [Recovered/Resolved]

NARRATIVE: CASE EVENT DATE: 20250311
